FAERS Safety Report 9190946 (Version 1)
Quarter: 2013Q1

REPORT INFORMATION
  Report Type: Spontaneous
  Country: US (occurrence: US)
  Receive Date: 20130326
  Receipt Date: 20130326
  Transmission Date: 20140127
  Serious: Yes (Other)
  Sender: FDA-Public Use
  Company Number: US-PFIZER INC-2013096076

PATIENT
  Age: 33 Year
  Sex: Male

DRUGS (1)
  1. DOSTINEX [Suspect]
     Indication: PITUITARY TUMOUR BENIGN
     Dosage: UNK

REACTIONS (2)
  - Hypoacusis [Unknown]
  - Otoacoustic emissions test abnormal [Unknown]
